FAERS Safety Report 25598338 (Version 1)
Quarter: 2025Q3

REPORT INFORMATION
  Report Type: Spontaneous
  Country: US (occurrence: US)
  Receive Date: 20250723
  Receipt Date: 20250723
  Transmission Date: 20251021
  Serious: No
  Sender: ABBVIE
  Company Number: US-ABBVIE-6381071

PATIENT
  Sex: Female

DRUGS (2)
  1. LATISSE [Suspect]
     Active Substance: BIMATOPROST
     Indication: Product used for unknown indication
     Route: 061
     Dates: start: 2018
  2. LATISSE [Suspect]
     Active Substance: BIMATOPROST
     Route: 061
     Dates: start: 202506

REACTIONS (2)
  - Drug ineffective [Unknown]
  - Product lot number issue [Unknown]
